FAERS Safety Report 6530916-1 (Version None)
Quarter: 2010Q1

REPORT INFORMATION
  Report Type: 
  Country: None (occurrence: None)
  Receive Date: 20100108
  Receipt Date: 20090612
  Transmission Date: 20100710
  Serious: No
  Sender: FDA-Public Use
  Company Number: A0787784A

PATIENT
  Age: 70 Year
  Sex: Male
  Weight: 72.7 kg

DRUGS (5)
  1. LOVAZA [Suspect]
     Indication: LIPIDS
     Dosage: 2G IN THE MORNING
     Route: 048
     Dates: start: 20070101, end: 20080101
  2. BLOOD PRESSURE MEDICATION [Concomitant]
  3. LOZOL [Concomitant]
  4. DIOVAN [Concomitant]
  5. TOPROL-XL [Concomitant]

REACTIONS (3)
  - BLOOD PRESSURE DECREASED [None]
  - BLOOD PRESSURE INADEQUATELY CONTROLLED [None]
  - DRUG INTERACTION [None]
